FAERS Safety Report 24210492 (Version 1)
Quarter: 2024Q3

REPORT INFORMATION
  Report Type: Spontaneous
  Country: FR (occurrence: FR)
  Receive Date: 20240814
  Receipt Date: 20240814
  Transmission Date: 20241016
  Serious: Yes (Other)
  Sender: AMGEN
  Company Number: FR-ROCHE-10000041963

PATIENT
  Age: 74 Year
  Sex: Female
  Weight: 62 kg

DRUGS (3)
  1. TRASTUZUMAB [Suspect]
     Active Substance: TRASTUZUMAB
     Indication: Breast cancer
     Dosage: 472 MILLIGRAM, EVERY 21 DAY (START DATE OF MOST RECENT DOSE PRIOR TO AE: 02-OCT-2013)
     Route: 040
     Dates: start: 20121010
  2. ELIQUIS [Concomitant]
     Active Substance: APIXABAN
     Dosage: 2.5 MILLIGRAM
     Route: 065
     Dates: start: 20211025
  3. SOTALOL [Concomitant]
     Active Substance: SOTALOL
     Dosage: 80 MILLIGRAM
     Route: 065
     Dates: start: 20211025

REACTIONS (1)
  - Atrial fibrillation [Recovering/Resolving]

NARRATIVE: CASE EVENT DATE: 20231009
